FAERS Safety Report 25405497 (Version 1)
Quarter: 2025Q2

REPORT INFORMATION
  Report Type: Report from Study
  Country: CN (occurrence: CN)
  Receive Date: 20250606
  Receipt Date: 20250606
  Transmission Date: 20250716
  Serious: Yes (Other)
  Sender: ACCORD
  Company Number: CN-Accord-487970

PATIENT

DRUGS (3)
  1. METHOTREXATE [Suspect]
     Active Substance: METHOTREXATE
     Indication: Central nervous system lymphoma
     Dosage: 3.5 G/M2 ON DAY1, TOTAL OF SIX CYCLES (FOR A DURATION OF 3 WEEKS PER CYCLE)
  2. RITUXIMAB [Suspect]
     Active Substance: RITUXIMAB
     Indication: Central nervous system lymphoma
     Dosage: ON DAY 0, TOTAL OF SIX CYCLES, FOR A DURATION OF 3 WEEKS PER CYCLE
  3. LENALIDOMIDE [Suspect]
     Active Substance: LENALIDOMIDE
     Indication: Central nervous system lymphoma
     Dosage: ON DAYS 3-17 (TOTAL OF SIX CYCLES, FOR A DURATION OF 3 WEEKS PER CYCLE)

REACTIONS (1)
  - Haematotoxicity [Unknown]
